FAERS Safety Report 7308762-0 (Version None)
Quarter: 2011Q1

REPORT INFORMATION
  Report Type: 
  Country: None (occurrence: None)
  Receive Date: 20110223
  Receipt Date: 20110214
  Transmission Date: 20110831
  Serious: Yes (Other)
  Sender: FDA-Public Use
  Company Number: PHHY2010US82899

PATIENT
  Age: 88 Year
  Sex: Female

DRUGS (1)
  1. EXELON [Suspect]
     Route: 062

REACTIONS (5)
  - HIP FRACTURE [None]
  - FALL [None]
  - ABNORMAL DREAMS [None]
  - LIMB INJURY [None]
  - FATIGUE [None]
